FAERS Safety Report 4994968-2 (Version None)
Quarter: 2006Q2

REPORT INFORMATION
  Report Type: 
  Country: None (occurrence: None)
  Receive Date: 20060503
  Receipt Date: 20060418
  Transmission Date: 20061013
  Serious: Yes (Hospitalization)
  Sender: FDA-Public Use
  Company Number: S06-SWE-01586-01

PATIENT
  Age: 58 Year
  Sex: Female

DRUGS (4)
  1. CIPRAMIL (CITALOPRAM HYDROBROMIDE) [Suspect]
     Indication: DEPRESSION
     Dosage: 20  MG QD PO
     Route: 048
     Dates: start: 19960101, end: 20060112
  2. KALCIUMFOLINAT (CALCIUM FOLINATE) [Concomitant]
  3. TROMBUL (ACETYLSALICYLIC ACID) [Concomitant]
  4. SILICA EXTRA [Concomitant]

REACTIONS (2)
  - ELECTROCARDIOGRAM QT PROLONGED [None]
  - VENTRICULAR FIBRILLATION [None]
